FAERS Safety Report 7217002-2 (Version None)
Quarter: 2011Q1

REPORT INFORMATION
  Report Type: 
  Country: None (occurrence: None)
  Receive Date: 20110110
  Receipt Date: 20101110
  Transmission Date: 20110831
  Serious: No
  Sender: FDA-Public Use
  Company Number: A0891942A

PATIENT
  Sex: Male

DRUGS (1)
  1. ROPINIROLE [Suspect]

REACTIONS (1)
  - THERAPEUTIC RESPONSE DECREASED [None]
